FAERS Safety Report 16526976 (Version 3)
Quarter: 2019Q4

REPORT INFORMATION
  Report Type: Report from Study
  Country: None (occurrence: US)
  Receive Date: 20190703
  Receipt Date: 20191108
  Transmission Date: 20200122
  Serious: Yes (Other)
  Sender: FDA-Public Use
  Company Number: US-ABBVIE-19K-163-2837989-00

PATIENT
  Age: 21 Year
  Sex: Female

DRUGS (4)
  1. HUMIRA [Suspect]
     Active Substance: ADALIMUMAB
     Indication: CROHN^S DISEASE
     Route: 058
     Dates: start: 20190417, end: 2019
  2. IRON [Concomitant]
     Active Substance: IRON
     Indication: PRODUCT USED FOR UNKNOWN INDICATION
  3. HUMIRA [Suspect]
     Active Substance: ADALIMUMAB
     Indication: CROHN^S DISEASE
     Route: 058
     Dates: start: 20190515
  4. PRENATAL VITAMINS [Concomitant]
     Active Substance: VITAMINS
     Indication: PRODUCT USED FOR UNKNOWN INDICATION

REACTIONS (22)
  - Fear [Unknown]
  - Abdominal pain upper [Recovering/Resolving]
  - Maternal exposure during pregnancy [Unknown]
  - Constipation [Unknown]
  - Loss of personal independence in daily activities [Unknown]
  - Haematochezia [Recovering/Resolving]
  - Anxiety [Unknown]
  - Insomnia [Unknown]
  - Abdominal pain [Recovering/Resolving]
  - Ileectomy [Unknown]
  - Haemorrhoids [Recovering/Resolving]
  - Hypoaesthesia [Unknown]
  - Rectal haemorrhage [Recovered/Resolved]
  - Rhinorrhoea [Unknown]
  - Nausea [Unknown]
  - Diarrhoea [Unknown]
  - Faeces soft [Recovering/Resolving]
  - Incorrect dose administered [Unknown]
  - Arthralgia [Unknown]
  - Vomiting [Unknown]
  - Nasopharyngitis [Unknown]
  - Headache [Unknown]

NARRATIVE: CASE EVENT DATE: 2019
